FAERS Safety Report 23575985 (Version 1)
Quarter: 2024Q1

REPORT INFORMATION
  Report Type: Spontaneous
  Country: US (occurrence: US)
  Receive Date: 20240228
  Receipt Date: 20240228
  Transmission Date: 20240410
  Serious: No
  Sender: FDA-Public Use
  Company Number: US-SA-SAC20240226001437

PATIENT
  Sex: Female

DRUGS (1)
  1. DUPIXENT [Suspect]
     Active Substance: DUPILUMAB
     Indication: Dermatitis atopic
     Dosage: UNK UNK, Q15D
     Route: 058
     Dates: start: 201912

REACTIONS (2)
  - Injection site mass [Recovered/Resolved]
  - Wrong technique in device usage process [Unknown]
